FAERS Safety Report 6877535-5 (Version None)
Quarter: 2010Q3

REPORT INFORMATION
  Report Type: 
  Country: None (occurrence: None)
  Receive Date: 20100727
  Receipt Date: 20091119
  Transmission Date: 20110219
  Serious: No
  Sender: FDA-Public Use
  Company Number: US-ABBOTT-09P-163-0610889-00

PATIENT
  Sex: Female
  Weight: 66.284 kg

DRUGS (11)
  1. SYNTHROID [Suspect]
     Indication: PRODUCT USED FOR UNKNOWN INDICATION
  2. SYNTHROID [Suspect]
  3. INSULIN NOVOLINE [Suspect]
     Indication: DIABETES MELLITUS
     Dosage: 70/30
  4. FELODIPINE [Concomitant]
     Indication: BLOOD PRESSURE
  5. GLIMEPIRIDE [Concomitant]
     Indication: DIABETES MELLITUS
  6. VITAMIN B-12 [Concomitant]
     Indication: PRODUCT USED FOR UNKNOWN INDICATION
     Route: 060
  7. DIOVAN [Concomitant]
     Indication: BLOOD PRESSURE
  8. METOPROLOL [Concomitant]
     Indication: BLOOD PRESSURE
  9. CRESTOR [Concomitant]
     Indication: PRODUCT USED FOR UNKNOWN INDICATION
  10. OMEGA [Concomitant]
     Indication: PRODUCT USED FOR UNKNOWN INDICATION
  11. PLAVIX [Concomitant]
     Indication: PRODUCT USED FOR UNKNOWN INDICATION

REACTIONS (8)
  - ASTHENIA [None]
  - BALANCE DISORDER [None]
  - DIZZINESS [None]
  - GAIT DISTURBANCE [None]
  - HYPERHIDROSIS [None]
  - MENTAL IMPAIRMENT [None]
  - VISUAL IMPAIRMENT [None]
  - WEIGHT INCREASED [None]
